FAERS Safety Report 19367090 (Version 3)
Quarter: 2021Q2

REPORT INFORMATION
  Report Type: Spontaneous
  Country: US (occurrence: US)
  Receive Date: 20210603
  Receipt Date: 20210625
  Transmission Date: 20210717
  Serious: No
  Sender: FDA-Public Use
  Company Number: US-BIOGEN-2021BI01014498

PATIENT
  Age: 40 Year
  Sex: Female

DRUGS (1)
  1. TECFIDERA [Suspect]
     Active Substance: DIMETHYL FUMARATE
     Indication: MULTIPLE SCLEROSIS
     Route: 048
     Dates: start: 20210507, end: 20210512

REACTIONS (17)
  - Headache [Recovered/Resolved]
  - Gait disturbance [Unknown]
  - Fatigue [Recovered/Resolved]
  - Mobility decreased [Recovered/Resolved]
  - Somnolence [Recovered/Resolved]
  - Abdominal pain upper [Recovered/Resolved]
  - Depressed mood [Recovered/Resolved]
  - Cognitive disorder [Unknown]
  - Balance disorder [Recovered/Resolved]
  - Pain in extremity [Recovered/Resolved]
  - Motor dysfunction [Recovered/Resolved]
  - Periorbital swelling [Recovered/Resolved]
  - Swelling face [Recovered/Resolved]
  - Loss of control of legs [Recovered/Resolved]
  - Peripheral swelling [Recovered/Resolved]
  - Amnesia [Recovered/Resolved]
  - Sedation [Unknown]

NARRATIVE: CASE EVENT DATE: 20210508
